FAERS Safety Report 4290257-2 (Version None)
Quarter: 2004Q1

REPORT INFORMATION
  Report Type: 
  Country: None (occurrence: None)
  Receive Date: 20040209
  Receipt Date: 20040126
  Transmission Date: 20041129
  Serious: Yes (Life-Threatening)
  Sender: FDA-Public Use
  Company Number: US012666

PATIENT
  Age: 48 Year
  Sex: Female

DRUGS (12)
  1. PROVIGIL [Suspect]
     Indication: SLEEP DISORDER
  2. KEFLEX [Suspect]
  3. SEROTONIN REUPTAKE INHIBITOR [Concomitant]
  4. ZOCOR [Concomitant]
  5. PLAVIX [Concomitant]
  6. TOPROL-XL [Concomitant]
  7. AMBIEN [Concomitant]
  8. PREVACID [Concomitant]
  9. HYDROCHLOROTHIAZIDE [Concomitant]
  10. ASPIRIN [Concomitant]
  11. XANAX [Concomitant]
  12. VICODIN [Concomitant]

REACTIONS (2)
  - ANAPHYLACTIC REACTION [None]
  - DRUG INTERACTION [None]
